FAERS Safety Report 15383775 (Version 2)
Quarter: 2018Q4

REPORT INFORMATION
  Report Type: Spontaneous
  Country: IT (occurrence: IT)
  Receive Date: 20180913
  Receipt Date: 20181010
  Transmission Date: 20190204
  Serious: Yes (Death, Other)
  Sender: FDA-Public Use
  Company Number: IT-ABBVIE-18K-083-2465773-00

PATIENT
  Age: 54 Year
  Sex: Male

DRUGS (5)
  1. VENETOCLAX. [Suspect]
     Active Substance: VENETOCLAX
     Indication: ACUTE MYELOID LEUKAEMIA
     Route: 048
     Dates: start: 2018, end: 2018
  2. RASBURICASE [Concomitant]
     Active Substance: RASBURICASE
     Indication: PRODUCT USED FOR UNKNOWN INDICATION
  3. VENETOCLAX. [Suspect]
     Active Substance: VENETOCLAX
     Route: 048
     Dates: start: 2018, end: 2018
  4. 5-AZACYTIDINE [Concomitant]
     Active Substance: AZACITIDINE
     Indication: PRODUCT USED FOR UNKNOWN INDICATION
     Dosage: 75 MG/MQ
     Dates: start: 20180731
  5. VENETOCLAX. [Suspect]
     Active Substance: VENETOCLAX
     Route: 048
     Dates: start: 20180724, end: 20180731

REACTIONS (10)
  - Hypoxia [Fatal]
  - Acute myeloid leukaemia [Fatal]
  - Hypotension [Fatal]
  - Pyrexia [Recovered/Resolved]
  - Pain [Fatal]
  - Dyspnoea [Not Recovered/Not Resolved]
  - Melaena [Fatal]
  - Septic shock [Fatal]
  - Seizure [Fatal]
  - Oedema [Fatal]

NARRATIVE: CASE EVENT DATE: 20180730
